FAERS Safety Report 20729598 (Version 2)
Quarter: 2022Q3

REPORT INFORMATION
  Report Type: Report from Study
  Country: GB (occurrence: GB)
  Receive Date: 20220420
  Receipt Date: 20220919
  Transmission Date: 20221027
  Serious: Yes (Death, Hospitalization, Disabling)
  Sender: FDA-Public Use
  Company Number: GB-BoehringerIngelheim-2022-BI-164762

PATIENT
  Age: 67 Year
  Sex: Female

DRUGS (1)
  1. TENECTEPLASE [Suspect]
     Active Substance: TENECTEPLASE
     Indication: Ischaemic stroke
     Route: 042
     Dates: start: 20220404

REACTIONS (3)
  - Neurological decompensation [Fatal]
  - Cerebral haemorrhage [Not Recovered/Not Resolved]
  - Cerebral infarction [Fatal]

NARRATIVE: CASE EVENT DATE: 20220405
